FAERS Safety Report 8423987-9 (Version None)
Quarter: 2012Q2

REPORT INFORMATION
  Report Type: 
  Country: None (occurrence: None)
  Receive Date: 20120608
  Receipt Date: 20120531
  Transmission Date: 20120825
  Serious: Yes (Other)
  Sender: FDA-Public Use
  Company Number: US-RB-041030-12

PATIENT
  Sex: Male

DRUGS (3)
  1. SUBOXONE [Suspect]
     Indication: DRUG DEPENDENCE
     Dosage: 8 MG DAILY TAPERED TO 2 MG DAILY AT TIMES
     Route: 064
     Dates: start: 20120201, end: 20120430
  2. NICOTINE [Suspect]
     Indication: NICOTINE DEPENDENCE
     Dosage: 2 PACKS DAILY TAPERED TO 6 CIGARETTES DAILY
     Route: 064
     Dates: start: 20110701, end: 20120430
  3. PERCOCET [Suspect]
     Indication: PAIN
     Dosage: DOSING DETAILS UNKNOWN
     Route: 064
     Dates: start: 20110701, end: 20120201

REACTIONS (4)
  - FEVER NEONATAL [None]
  - DRUG WITHDRAWAL SYNDROME NEONATAL [None]
  - SEPSIS NEONATAL [None]
  - FOETAL EXPOSURE DURING PREGNANCY [None]
